FAERS Safety Report 11580796 (Version 1)
Quarter: 2015Q4

REPORT INFORMATION
  Report Type: Spontaneous
  Country: US (occurrence: US)
  Receive Date: 20151001
  Receipt Date: 20151001
  Transmission Date: 20160304
  Serious: No
  Sender: FDA-Public Use
  Company Number: US-ASTRAZENECA-2015SE91872

PATIENT
  Sex: Female
  Weight: 89.4 kg

DRUGS (2)
  1. PHENTERMINE. [Concomitant]
     Active Substance: PHENTERMINE
  2. BYDUREON [Suspect]
     Active Substance: EXENATIDE
     Indication: WEIGHT DECREASED
     Route: 065

REACTIONS (5)
  - Injection site pruritus [Unknown]
  - Off label use [Unknown]
  - Injection site pain [Unknown]
  - Injection site nodule [Unknown]
  - Product use issue [Unknown]
